FAERS Safety Report 4611560-X (Version None)
Quarter: 2005Q2

REPORT INFORMATION
  Report Type: 
  Country: None (occurrence: None)
  Receive Date: 20050311
  Receipt Date: 20050114
  Transmission Date: 20051028
  Serious: No
  Sender: FDA-Public Use
  Company Number: 2005-BP-00575BP

PATIENT
  Age: 77 Year
  Sex: Male

DRUGS (7)
  1. SPIRIVA [Suspect]
     Indication: CHRONIC OBSTRUCTIVE PULMONARY DISEASE
     Dosage: 18 MCG (18 MCG), IH
     Route: 055
     Dates: start: 20040701
  2. SPIRIVA [Suspect]
     Indication: EMPHYSEMA
     Dosage: 18 MCG (18 MCG), IH
     Route: 055
     Dates: start: 20040701
  3. ADVAIR DISKUS 100/50 [Concomitant]
  4. ALBUTEROL [Concomitant]
  5. SINGULAIR (MONTELUKAST) [Concomitant]
  6. DILTIAZEM [Concomitant]
  7. CELEBREX [Concomitant]

REACTIONS (2)
  - AGEUSIA [None]
  - SENSORY LOSS [None]
